FAERS Safety Report 14213139 (Version 1)
Quarter: 2017Q4

REPORT INFORMATION
  Report Type: Spontaneous
  Country: US (occurrence: US)
  Receive Date: 20171122
  Receipt Date: 20171122
  Transmission Date: 20180321
  Serious: Yes (Other)
  Sender: FDA-Public Use
  Company Number: None

PATIENT
  Age: 56 Year
  Sex: Male
  Weight: 73.8 kg

DRUGS (10)
  1. PERCOCET [Concomitant]
     Active Substance: ACETAMINOPHEN\OXYCODONE HYDROCHLORIDE
  2. VITAMIN D [Concomitant]
     Active Substance: CHOLECALCIFEROL
  3. NAPROSYN [Concomitant]
     Active Substance: NAPROXEN
  4. CISPLATIN. [Concomitant]
     Active Substance: CISPLATIN
  5. IMATINIB [Suspect]
     Active Substance: IMATINIB
     Indication: OROPHARYNGEAL CANCER
     Route: 048
     Dates: start: 20170921, end: 20171117
  6. SENNA S [Concomitant]
     Active Substance: DOCUSATE SODIUM\SENNA LEAF
  7. KEYTRUDA [Concomitant]
     Active Substance: PEMBROLIZUMAB
  8. PREDNISONE. [Concomitant]
     Active Substance: PREDNISONE
  9. PROBIOTIC [Concomitant]
     Active Substance: PROBIOTICS NOS
  10. MULTIVITAMIN [Concomitant]
     Active Substance: VITAMINS

REACTIONS (1)
  - Disease progression [None]

NARRATIVE: CASE EVENT DATE: 20171117
